FAERS Safety Report 4624253-X (Version None)
Quarter: 2005Q1

REPORT INFORMATION
  Report Type: 
  Country: None (occurrence: None)
  Receive Date: 20050330
  Receipt Date: 20050330
  Transmission Date: 20050727
  Serious: Yes (Death)
  Sender: FDA-Public Use
  Company Number: None

PATIENT
  Age: 60 Year
  Sex: Male
  Weight: 86.4 kg

DRUGS (10)
  1. ONTAK [Suspect]
     Indication: GRAFT VERSUS HOST DISEASE
     Dosage: 300 MG /QD/ IV
     Route: 042
     Dates: start: 20000224, end: 20050228
  2. ALBUTEROL [Concomitant]
  3. DAPAONE [Concomitant]
  4. DIPHENHYDRAMINE HCL [Concomitant]
  5. FLUTICASONE/SALMETEROL [Concomitant]
  6. LOPERAMIDE HCL [Concomitant]
  7. METHYLPREDNISOLONE [Concomitant]
  8. OMEPRAZOLE [Concomitant]
  9. PROCHLORPERAZINE [Concomitant]
  10. TRIAMCINOLONE CREAM [Concomitant]

REACTIONS (9)
  - HAEMOPTYSIS [None]
  - HYPOXIA [None]
  - INTERSTITIAL LUNG DISEASE [None]
  - METABOLIC ACIDOSIS [None]
  - PLEURAL ADHESION [None]
  - PLEURAL EFFUSION [None]
  - PULMONARY ALVEOLAR HAEMORRHAGE [None]
  - PULMONARY HAEMORRHAGE [None]
  - RESPIRATORY DISTRESS [None]
